FAERS Safety Report 4465373-2 (Version None)
Quarter: 2004Q3

REPORT INFORMATION
  Report Type: 
  Country: None (occurrence: None)
  Receive Date: 20040930
  Receipt Date: 20030813
  Transmission Date: 20050211
  Serious: Yes (Disabling)
  Sender: FDA-Public Use
  Company Number: 2003-DE-03346ZA

PATIENT
  Age: 79 Year
  Sex: Female

DRUGS (6)
  1. TIOTROPIUM-BROMIDE (KAI) (TIOTROPIUM) [Suspect]
     Indication: CHRONIC OBSTRUCTIVE AIRWAYS DISEASE
     Dosage: 18 MCG (18 MCG) IH
     Route: 055
     Dates: start: 20030501, end: 20030501
  2. CIPRAMIL (CITALOPRAM) [Concomitant]
  3. QVAR 40 [Concomitant]
  4. CALCIUM [Concomitant]
  5. HOME OXYGEN [Concomitant]
  6. COMBIVENT [Concomitant]

REACTIONS (2)
  - NAUSEA [None]
  - PALPITATIONS [None]
